FAERS Safety Report 14185773 (Version 4)
Quarter: 2017Q4

REPORT INFORMATION
  Report Type: Spontaneous
  Country: JP (occurrence: JP)
  Receive Date: 20171114
  Receipt Date: 20171211
  Transmission Date: 20180321
  Serious: Yes (Life-Threatening, Hospitalization, Other)
  Sender: FDA-Public Use
  Company Number: JP-009507513-1703JPN000984J

PATIENT
  Age: 69 Year
  Sex: Male
  Weight: 50 kg

DRUGS (2)
  1. NAIXAN [Concomitant]
     Active Substance: NAPROXEN SODIUM
     Indication: CANCER PAIN
     Dosage: 600MG A DAY, THREE TIMES A DAY
     Route: 048
  2. KEYTRUDA [Suspect]
     Active Substance: PEMBROLIZUMAB
     Indication: SQUAMOUS CELL CARCINOMA OF LUNG
     Dosage: 200 MG, Q3W
     Route: 041
     Dates: start: 20170309, end: 20171012

REACTIONS (7)
  - Pyrexia [Recovered/Resolved]
  - Enteritis [Recovered/Resolved with Sequelae]
  - Decreased appetite [Recovered/Resolved]
  - Pyrexia [Not Recovered/Not Resolved]
  - Small intestinal perforation [Recovered/Resolved with Sequelae]
  - Diarrhoea [Recovered/Resolved]
  - Abdominal pain [Recovered/Resolved]

NARRATIVE: CASE EVENT DATE: 2017
